FAERS Safety Report 6355407-2 (Version None)
Quarter: 2009Q3

REPORT INFORMATION
  Report Type: 
  Country: None (occurrence: None)
  Receive Date: 20090914
  Receipt Date: 20090902
  Transmission Date: 20100115
  Serious: Yes (Other)
  Sender: FDA-Public Use
  Company Number: US-JNJCH-2007315070

PATIENT
  Sex: Male
  Weight: 27.2 kg

DRUGS (1)
  1. LISTERINE AGENT COOL BLUE GLACIER MINT [Suspect]
     Indication: DENTAL CARE
     Dosage: TEXT:10 ML ONCE OR TWICE DAILY
     Route: 048
     Dates: start: 20070401, end: 20070801

REACTIONS (2)
  - GASTROENTERITIS VIRAL [None]
  - INFLUENZA [None]
